FAERS Safety Report 9809080 (Version 2)
Quarter: 2014Q1

REPORT INFORMATION
  Report Type: Spontaneous
  Country: CR (occurrence: CR)
  Receive Date: 20140110
  Receipt Date: 20140114
  Transmission Date: 20141002
  Serious: Yes (Life-Threatening, Other)
  Sender: FDA-Public Use
  Company Number: PHHY2014CR002318

PATIENT
  Sex: Female

DRUGS (1)
  1. VOLTAREN [Suspect]
     Indication: MUSCLE CONTRACTURE
     Dosage: 1 AMP, UNK
     Route: 030

REACTIONS (6)
  - Dyspnoea [Recovered/Resolved]
  - Aphonia [Recovering/Resolving]
  - Hypersensitivity [Unknown]
  - Dysphonia [Unknown]
  - Oropharyngeal pain [Unknown]
  - Erythema [Unknown]
